FAERS Safety Report 23242271 (Version 1)
Quarter: 2023Q4

REPORT INFORMATION
  Report Type: Report from Study
  Country: HK (occurrence: None)
  Receive Date: 20231129
  Receipt Date: 20231129
  Transmission Date: 20240110
  Serious: Yes (Hospitalization)
  Sender: FDA-Public Use
  Company Number: 2023A266097

PATIENT
  Age: 63 Year
  Sex: Male
  Weight: 55.6 kg

DRUGS (7)
  1. CILGAVIMAB\TIXAGEVIMAB [Suspect]
     Active Substance: CILGAVIMAB\TIXAGEVIMAB
     Indication: COVID-19
     Dosage: 600MG ONCE
     Route: 030
     Dates: start: 20231111, end: 20231111
  2. PROMETHAZINE COMPOUND LINCTUS [Concomitant]
     Indication: Symptomatic treatment
     Dosage: 15ML
     Route: 048
     Dates: start: 20230609, end: 20230928
  3. BROMHEXINE HCL TABLET [Concomitant]
     Indication: Symptomatic treatment
     Dosage: 24 MG
     Route: 048
     Dates: start: 20230306, end: 20230928
  4. ACETAMINOPHEN [Concomitant]
     Active Substance: ACETAMINOPHEN
     Indication: Symptomatic treatment
     Dosage: AS NEEDED
     Route: 048
     Dates: start: 20230211
  5. SENNA TABLET [Concomitant]
     Indication: Supplementary motor area syndrome
     Dosage: 15 MG
     Route: 048
     Dates: start: 20230327, end: 20230928
  6. PANTOPRAZOLE SODIUM [Concomitant]
     Active Substance: PANTOPRAZOLE SODIUM
     Indication: Prophylaxis
     Dosage: 40 MG
     Route: 048
     Dates: start: 20220615
  7. ENTECAVIR [Concomitant]
     Active Substance: ENTECAVIR
     Indication: Hepatitis B
     Dosage: 0.5 MG
     Route: 048
     Dates: start: 20220414

REACTIONS (3)
  - Shock [Recovered/Resolved]
  - COVID-19 [Recovered/Resolved]
  - Pneumonia [Recovered/Resolved]

NARRATIVE: CASE EVENT DATE: 20230616
